FAERS Safety Report 23932330 (Version 1)
Quarter: 2024Q2

REPORT INFORMATION
  Report Type: Spontaneous
  Country: ZA (occurrence: None)
  Receive Date: 20240603
  Receipt Date: 20240603
  Transmission Date: 20240716
  Serious: Yes (Hospitalization)
  Sender: FDA-Public Use
  Company Number: 2024A125745

PATIENT
  Age: 51 Year
  Sex: Female

DRUGS (8)
  1. BUDESONIDE\FORMOTEROL FUMARATE DIHYDRATE [Suspect]
     Active Substance: BUDESONIDE\FORMOTEROL FUMARATE DIHYDRATE
  2. ZOLPIDEM TARTRATE [Concomitant]
     Active Substance: ZOLPIDEM TARTRATE
  3. FUROSEMIDE [Concomitant]
     Active Substance: FUROSEMIDE
  4. TOPRAZ [Concomitant]
  5. ASPIRIN [Concomitant]
     Active Substance: ASPIRIN
  6. METHOTREXATE SODIUM [Concomitant]
     Active Substance: METHOTREXATE SODIUM
  7. RIVAROXABAN [Concomitant]
     Active Substance: RIVAROXABAN
  8. EUTHYROX [Concomitant]
     Active Substance: LEVOTHYROXINE SODIUM

REACTIONS (1)
  - Illness [Unknown]
